FAERS Safety Report 5893854-3 (Version None)
Quarter: 2008Q3

REPORT INFORMATION
  Report Type: 
  Country: None (occurrence: None)
  Receive Date: 20080923
  Receipt Date: 20080311
  Transmission Date: 20090109
  Serious: No
  Sender: FDA-Public Use
  Company Number: US-ASTRAZENECA-2007UW25883

PATIENT
  Sex: Male

DRUGS (7)
  1. SEROQUEL [Suspect]
     Indication: PSYCHOTIC DISORDER
     Dosage: TWO 25 MG SEROQUEL TABLETS
     Route: 048
     Dates: start: 20050101
  2. SEROQUEL [Suspect]
     Indication: SCHIZOAFFECTIVE DISORDER
     Dosage: TWO 25 MG SEROQUEL TABLETS
     Route: 048
     Dates: start: 20050101
  3. ZYPREXA [Concomitant]
  4. LEVOXYL [Concomitant]
  5. PROTONIX [Concomitant]
  6. CLONAZEPAM [Concomitant]
  7. ATENOLOL [Concomitant]

REACTIONS (3)
  - DRY MOUTH [None]
  - DYSPHONIA [None]
  - THROAT IRRITATION [None]
